FAERS Safety Report 18340000 (Version 1)
Quarter: 2020Q4

REPORT INFORMATION
  Report Type: Spontaneous
  Country: CA (occurrence: CA)
  Receive Date: 20201002
  Receipt Date: 20201002
  Transmission Date: 20210113
  Serious: Yes (Hospitalization)
  Sender: FDA-Public Use
  Company Number: CA-EISAI MEDICAL RESEARCH-EC-2020-081359

PATIENT
  Age: 27 Year
  Sex: Male

DRUGS (11)
  1. TOPIRAMATE. [Suspect]
     Active Substance: TOPIRAMATE
     Dosage: 500 MG TOTAL DOSE PER DAY (FREQUENCY UNKNOWN)
     Route: 065
  2. CARBAMAZEPINE. [Concomitant]
     Active Substance: CARBAMAZEPINE
     Dosage: DOSE AND FREQUENCY UNKNOWN
     Route: 065
  3. PERAMPANEL [Suspect]
     Active Substance: PERAMPANEL
     Route: 048
  4. TOPIRAMATE. [Suspect]
     Active Substance: TOPIRAMATE
     Indication: SEIZURE
     Dosage: 500 MG TOTAL DOSE PER DAY (FREQUENCY UNKNOWN)
     Route: 065
  5. TOPIRAMATE. [Suspect]
     Active Substance: TOPIRAMATE
     Dosage: UNKNOWN REDUCED DOSE AND FREQUENCY
     Route: 065
  6. CARBAMAZEPINE. [Concomitant]
     Active Substance: CARBAMAZEPINE
     Dosage: WEANED
     Route: 065
  7. PERAMPANEL [Suspect]
     Active Substance: PERAMPANEL
     Dosage: DOSE WEANED
     Route: 048
  8. PERAMPANEL [Suspect]
     Active Substance: PERAMPANEL
     Indication: SEIZURE
     Dosage: DOSE AND FREQUENCY UNKNOWN
     Route: 048
  9. PHENYTOIN. [Concomitant]
     Active Substance: PHENYTOIN
     Indication: SEIZURE
     Dosage: DOSE AND FREQUENCY UNKNOWN
     Route: 065
  10. TOPIRAMATE. [Suspect]
     Active Substance: TOPIRAMATE
     Dosage: 300 MG TOTAL DOSE PER DAY (FREQUENCY UNKNOWN)
     Route: 065
  11. CARBAMAZEPINE. [Concomitant]
     Active Substance: CARBAMAZEPINE
     Indication: SEIZURE
     Dosage: 800 MG TOTAL DOSE PER DAY (FREQUENCY UNKNOWN)
     Route: 065

REACTIONS (1)
  - Hyperammonaemic encephalopathy [Recovered/Resolved]
